FAERS Safety Report 10170193 (Version 1)
Quarter: 2014Q2

REPORT INFORMATION
  Report Type: Spontaneous
  Country: CH (occurrence: CH)
  Receive Date: 20140513
  Receipt Date: 20140513
  Transmission Date: 20141212
  Serious: Yes (Death, Other)
  Sender: FDA-Public Use
  Company Number: CH-BAXTER-2014BAX015908

PATIENT
  Age: 79 Year
  Sex: Female

DRUGS (12)
  1. EXTRANEAL [Suspect]
     Indication: DIABETIC NEPHROPATHY
     Dosage: 1 BAG
     Route: 033
     Dates: start: 20130114
  2. EXTRANEAL [Suspect]
     Indication: PERITONEAL DIALYSIS
  3. PHYSIONEAL 40 CLEAR-FLEX 2.27% [Suspect]
     Indication: DIABETIC NEPHROPATHY
     Dosage: 3 BAGS
     Route: 033
     Dates: start: 20130114
  4. PHYSIONEAL 40 CLEAR-FLEX 2.27% [Suspect]
     Indication: PERITONEAL DIALYSIS
  5. ASPIRIN CARDIO [Concomitant]
     Indication: PRODUCT USED FOR UNKNOWN INDICATION
     Route: 048
  6. COSAAR [Concomitant]
     Indication: PRODUCT USED FOR UNKNOWN INDICATION
     Route: 048
  7. METOLAZON [Concomitant]
     Indication: PRODUCT USED FOR UNKNOWN INDICATION
     Route: 048
  8. NORVASC [Concomitant]
     Indication: PRODUCT USED FOR UNKNOWN INDICATION
     Route: 048
  9. PLAVIX [Concomitant]
     Indication: PRODUCT USED FOR UNKNOWN INDICATION
     Route: 048
  10. TOREM [Concomitant]
     Indication: PRODUCT USED FOR UNKNOWN INDICATION
     Route: 048
  11. HUMALOG [Concomitant]
     Indication: PRODUCT USED FOR UNKNOWN INDICATION
     Route: 058
     Dates: start: 20131118
  12. INSULIN [Concomitant]
     Indication: PRODUCT USED FOR UNKNOWN INDICATION
     Route: 058
     Dates: start: 20131118

REACTIONS (15)
  - Staphylococcal sepsis [Fatal]
  - Wound infection [Unknown]
  - Gangrene [Unknown]
  - Encephalopathy [Unknown]
  - Myxoedema coma [Unknown]
  - Gastrooesophageal reflux disease [Unknown]
  - Hypothyroidism [Unknown]
  - Haemoglobin decreased [Unknown]
  - Arthritis [Unknown]
  - Inflammatory marker increased [Unknown]
  - Osteoarthritis [Unknown]
  - Gastric ulcer [Unknown]
  - Infection [Unknown]
  - Hypokalaemia [Unknown]
  - Hypoglycaemia [Unknown]
